FAERS Safety Report 7522222-3 (Version None)
Quarter: 2011Q2

REPORT INFORMATION
  Report Type: 
  Country: None (occurrence: None)
  Receive Date: 20110603
  Receipt Date: 20110530
  Transmission Date: 20111010
  Serious: Yes (Other)
  Sender: FDA-Public Use
  Company Number: BR-PFIZER INC-2011116387

PATIENT
  Age: 45 Year
  Sex: Female

DRUGS (3)
  1. LIPITOR [Suspect]
     Indication: BLOOD CHOLESTEROL
     Dosage: 10 MG, UNK
     Route: 048
  2. LIPITOR [Suspect]
     Dosage: 20 MG, UNK
     Route: 048
  3. ATORVASTATIN CALCIUM [Suspect]
     Dosage: UNK

REACTIONS (5)
  - LARYNGEAL OEDEMA [None]
  - CARPAL TUNNEL SYNDROME [None]
  - MALAISE [None]
  - MYALGIA [None]
  - FIBROMYALGIA [None]
